FAERS Safety Report 21084376 (Version 1)
Quarter: 2022Q3

REPORT INFORMATION
  Report Type: Spontaneous
  Country: US (occurrence: US)
  Receive Date: 20220714
  Receipt Date: 20220714
  Transmission Date: 20221027
  Serious: No
  Sender: FDA-Public Use
  Company Number: US-JAZZ-2022-US-017009

PATIENT
  Sex: Female

DRUGS (1)
  1. EPIDIOLEX [Suspect]
     Active Substance: CANNABIDIOL
     Indication: Juvenile myoclonic epilepsy
     Dosage: 1.2 MILLILITER, BID
     Route: 048

REACTIONS (6)
  - Anxiety [Unknown]
  - Hiccups [Unknown]
  - Emotional disorder [Unknown]
  - Visual impairment [Unknown]
  - Seizure [Unknown]
  - Insomnia [Unknown]
